FAERS Safety Report 23512720 (Version 1)
Quarter: 2024Q1

REPORT INFORMATION
  Report Type: Spontaneous
  Country: US (occurrence: US)
  Receive Date: 20240212
  Receipt Date: 20240212
  Transmission Date: 20240410
  Serious: No
  Sender: FDA-Public Use
  Company Number: US-AERIE PHARMACEUTICALS-US-2023-000034

PATIENT
  Sex: Female

DRUGS (1)
  1. RHOPRESSA [Suspect]
     Active Substance: NETARSUDIL MESYLATE
     Indication: Glaucoma
     Dosage: 1 GTT, QHS, OU
     Route: 047

REACTIONS (5)
  - Conjunctival hyperaemia [Unknown]
  - Eye irritation [Unknown]
  - Instillation site irritation [Unknown]
  - Wrong technique in product usage process [Unknown]
  - Product administration error [Unknown]
